FAERS Safety Report 21761085 (Version 1)
Quarter: 2022Q4

REPORT INFORMATION
  Report Type: Spontaneous
  Country: CN (occurrence: CN)
  Receive Date: 20221221
  Receipt Date: 20221221
  Transmission Date: 20230113
  Serious: Yes (Other)
  Sender: FDA-Public Use
  Company Number: CN-PFIZER INC-PV202200126541

PATIENT
  Age: 3 Month
  Sex: Female
  Weight: 12.5 kg

DRUGS (1)
  1. ZYVOX [Suspect]
     Active Substance: LINEZOLID
     Indication: Sepsis
     Dosage: 0.07 G, 3X/DAY
     Route: 041
     Dates: start: 20220310, end: 20220330

REACTIONS (1)
  - Transaminases increased [Recovering/Resolving]

NARRATIVE: CASE EVENT DATE: 20220319
